FAERS Safety Report 6935641-0 (Version None)
Quarter: 2010Q3

REPORT INFORMATION
  Report Type: 
  Country: None (occurrence: None)
  Receive Date: 20100823
  Receipt Date: 20100809
  Transmission Date: 20110219
  Serious: Yes (Other)
  Sender: FDA-Public Use
  Company Number: PHHO2010US12359

PATIENT
  Sex: Male

DRUGS (29)
  1. PROLEUKIN [Suspect]
     Indication: METASTATIC MALIGNANT MELANOMA
     Dosage: UNK
  2. ZESTRIL [Concomitant]
  3. NORVASC [Concomitant]
  4. COREG [Concomitant]
  5. LASIX [Concomitant]
  6. PROTONIX [Concomitant]
  7. TRAZODONE HCL [Concomitant]
  8. REMERON [Concomitant]
  9. FLUCONAZOLE [Concomitant]
  10. BACTRIM DS [Concomitant]
  11. VALTREX [Concomitant]
  12. ACYCLOVIR [Concomitant]
  13. LEVAQUIN [Concomitant]
  14. SPIRONOLACTONE [Concomitant]
  15. NEUPOGEN [Concomitant]
  16. INSULIN GLARGINE [Concomitant]
  17. REGULAR INSULIN [Concomitant]
  18. DOCUSATE [Concomitant]
  19. OXYCODONE [Concomitant]
  20. FAMOTIDINE [Concomitant]
  21. ACETAMINOPHEN [Concomitant]
  22. LORAZEPAM [Concomitant]
  23. CEFEPIME [Concomitant]
  24. POTASSIUM CHLORIDE [Concomitant]
  25. DIPHENHYDRAMINE [Concomitant]
  26. INDOMETHACIN [Concomitant]
  27. DOPAMINE HYDROCHLORIDE [Concomitant]
  28. PROCHLORPERAZINE [Concomitant]
  29. ONDANSETRON [Concomitant]

REACTIONS (2)
  - CONFUSIONAL STATE [None]
  - ENCEPHALOPATHY [None]
